FAERS Safety Report 7822714-3 (Version None)
Quarter: 2011Q4

REPORT INFORMATION
  Report Type: 
  Country: None (occurrence: None)
  Receive Date: 20111018
  Receipt Date: 20111007
  Transmission Date: 20120403
  Serious: Yes (Hospitalization)
  Sender: FDA-Public Use
  Company Number: FR-BAXTER-2010BH009352

PATIENT
  Age: 59 Year
  Sex: Female
  Weight: 40 kg

DRUGS (25)
  1. FEIBA [Suspect]
     Route: 042
     Dates: start: 20091019, end: 20091019
  2. FEIBA [Suspect]
     Route: 042
     Dates: start: 20091019, end: 20091019
  3. FEIBA [Suspect]
     Route: 042
     Dates: start: 20091019, end: 20091019
  4. FEIBA [Suspect]
     Route: 042
     Dates: start: 20091017, end: 20091017
  5. FEIBA [Suspect]
     Route: 042
     Dates: start: 20091016, end: 20091016
  6. FEIBA [Suspect]
     Route: 042
     Dates: start: 20091017, end: 20091017
  7. FEIBA [Suspect]
     Route: 042
     Dates: start: 20091018, end: 20091018
  8. FEIBA [Suspect]
     Route: 042
     Dates: start: 20091018, end: 20091018
  9. FEIBA [Suspect]
     Route: 042
     Dates: start: 20091018, end: 20091018
  10. DIAMICRON [Concomitant]
     Indication: PRODUCT USED FOR UNKNOWN INDICATION
     Route: 065
     Dates: start: 20091117
  11. ACETAMINOPHEN [Concomitant]
     Indication: TOOTH ABSCESS
     Route: 065
     Dates: start: 20100222, end: 20100222
  12. FEIBA [Suspect]
     Route: 042
     Dates: start: 20091018, end: 20091018
  13. STEROGYL [Concomitant]
     Indication: PRODUCT USED FOR UNKNOWN INDICATION
     Route: 065
     Dates: start: 20091015, end: 20100303
  14. AMOXICILLIN [Concomitant]
     Indication: TOOTH ABSCESS
     Route: 065
     Dates: start: 20100225, end: 20100304
  15. FEIBA [Suspect]
     Indication: ACQUIRED HAEMOPHILIA
     Route: 042
     Dates: start: 20091016, end: 20091019
  16. FEIBA [Suspect]
     Indication: FACTOR VIII INHIBITION
     Route: 042
     Dates: start: 20091016, end: 20091019
  17. FEIBA [Suspect]
     Route: 042
     Dates: start: 20091017, end: 20091017
  18. FEIBA [Suspect]
     Route: 042
     Dates: start: 20091018, end: 20091018
  19. FEIBA [Suspect]
     Route: 042
     Dates: start: 20091018, end: 20091018
  20. KOREC [Concomitant]
     Indication: HYPERTENSION
     Route: 065
  21. OMEPRAZOLE [Concomitant]
     Indication: PRODUCT USED FOR UNKNOWN INDICATION
     Route: 065
     Dates: start: 20091214, end: 20100222
  22. FEIBA [Suspect]
     Route: 042
     Dates: start: 20091017, end: 20091017
  23. FEIBA [Suspect]
     Route: 042
     Dates: start: 20091016, end: 20091016
  24. FEIBA [Suspect]
     Route: 042
     Dates: start: 20091019, end: 20091019
  25. ESOMEPRAZOLE SODIUM [Concomitant]
     Indication: PRODUCT USED FOR UNKNOWN INDICATION
     Route: 065
     Dates: start: 20091015

REACTIONS (1)
  - OEDEMA PERIPHERAL [None]
